FAERS Safety Report 9893368 (Version 6)
Quarter: 2015Q1

REPORT INFORMATION
  Report Type: Spontaneous
  Country: US (occurrence: US)
  Receive Date: 20140213
  Receipt Date: 20150127
  Transmission Date: 20150721
  Serious: Yes (Hospitalization, Disabling, Other)
  Sender: FDA-Public Use
  Company Number: US-MERCK-1402USA004431

PATIENT
  Sex: Male
  Weight: 99.77 kg

DRUGS (2)
  1. JANUVIA [Suspect]
     Active Substance: SITAGLIPTIN PHOSPHATE
     Dosage: UNK
     Route: 048
     Dates: start: 2009
  2. JANUVIA [Suspect]
     Active Substance: SITAGLIPTIN PHOSPHATE
     Indication: TYPE 2 DIABETES MELLITUS
     Dosage: 100 MG, QD
     Route: 048
     Dates: start: 200711, end: 2013

REACTIONS (24)
  - Pancreaticoduodenectomy [Unknown]
  - Prostate cancer [Unknown]
  - Cyst [Unknown]
  - Periodontal disease [Unknown]
  - Anaemia [Unknown]
  - Renal stone removal [Unknown]
  - Cardiac murmur [Unknown]
  - Hypertension [Unknown]
  - Gingivitis [Unknown]
  - Gastritis [Unknown]
  - Dizziness [Unknown]
  - Vascular operation [Unknown]
  - Chronic kidney disease [Not Recovered/Not Resolved]
  - Cyst removal [Unknown]
  - Constipation [Unknown]
  - Nephropathy [Unknown]
  - Gastrooesophageal reflux disease [Unknown]
  - Adenocarcinoma pancreas [Not Recovered/Not Resolved]
  - Pancreatitis chronic [Not Recovered/Not Resolved]
  - Renal cyst [Unknown]
  - Cardiac failure chronic [Not Recovered/Not Resolved]
  - Chronic kidney disease [Not Recovered/Not Resolved]
  - Ulcer [Unknown]
  - Confusional state [Unknown]

NARRATIVE: CASE EVENT DATE: 20100819
